FAERS Safety Report 9352235 (Version 2)
Quarter: 2013Q3

REPORT INFORMATION
  Report Type: Report from Study
  Country: FR (occurrence: FR)
  Receive Date: 20130617
  Receipt Date: 20130725
  Transmission Date: 20140515
  Serious: Yes (Other)
  Sender: FDA-Public Use
  Company Number: FR-TEVA-412815ISR

PATIENT
  Age: 61 Year
  Sex: Female

DRUGS (7)
  1. MYOCET [Suspect]
     Indication: OVARIAN CANCER
     Route: 065
     Dates: start: 20130212, end: 20130430
  2. CARBOPLATINE [Suspect]
     Indication: OVARIAN CANCER
     Route: 065
     Dates: start: 20130212, end: 20130430
  3. PARACETAMOL [Concomitant]
     Dosage: 4 GRAM DAILY;
     Route: 048
  4. INEXIUM [Concomitant]
     Dosage: 20 MILLIGRAM DAILY;
     Route: 048
  5. LEVOTHYROX [Concomitant]
     Dosage: 50 MICROGRAM DAILY; IN THE MORNING
     Route: 048
  6. TRAMADOL [Concomitant]
     Route: 048
  7. LESCOL [Concomitant]
     Dosage: 40 MILLIGRAM DAILY; IN THE EVENING
     Route: 048

REACTIONS (2)
  - Pancytopenia [Recovered/Resolved]
  - Hepatocellular injury [Unknown]
